FAERS Safety Report 15277023 (Version 2)
Quarter: 2018Q3

REPORT INFORMATION
  Report Type: Report from Study
  Country: EC (occurrence: EC)
  Receive Date: 20180814
  Receipt Date: 20180905
  Transmission Date: 20181010
  Serious: Yes (Death, Other)
  Sender: FDA-Public Use
  Company Number: PHHY2018EC071957

PATIENT
  Age: 87 Year
  Sex: Male
  Weight: 180 kg

DRUGS (2)
  1. LASIX [Concomitant]
     Active Substance: FUROSEMIDE
     Indication: CARDIAC FAILURE
     Dosage: 40 MG, UNK (STARTED 3 YEARS AGO
     Route: 048
  2. ENTRESTO [Suspect]
     Active Substance: SACUBITRIL\VALSARTAN
     Indication: CARDIAC FAILURE
     Dosage: 50 MG, BID (TWICE PER DAY)
     Route: 048
     Dates: start: 20180323

REACTIONS (9)
  - Gastric disorder [Unknown]
  - Pleural effusion [Fatal]
  - Lung disorder [Fatal]
  - General physical health deterioration [Fatal]
  - Cerebrovascular accident [Unknown]
  - Myocardial infarction [Fatal]
  - Pulmonary oedema [Unknown]
  - Cholelithiasis [Unknown]
  - Fluid retention [Unknown]

NARRATIVE: CASE EVENT DATE: 20180804
